FAERS Safety Report 9518354 (Version 3)
Quarter: 2014Q2

REPORT INFORMATION
  Report Type: Spontaneous
  Country: IE (occurrence: IE)
  Receive Date: 20130912
  Receipt Date: 20140619
  Transmission Date: 20141212
  Serious: Yes (Death, Other)
  Sender: FDA-Public Use
  Company Number: IE-MILLENNIUM PHARMACEUTICALS, INC.-2013JNJ000220

PATIENT
  Sex: 0

DRUGS (6)
  1. VELCADE [Suspect]
     Indication: PLASMA CELL MYELOMA
     Dosage: 1.3 MG/M2, UNK
     Route: 065
     Dates: start: 20130616, end: 20130913
  2. CAELYX [Suspect]
     Indication: PLASMA CELL MYELOMA
     Dosage: 30 MG/M2, Q3WEEKS
     Route: 065
     Dates: start: 20130616, end: 20130909
  3. ZOLEDRONIC ACID [Concomitant]
  4. CO-TRIMOXAZOL [Concomitant]
  5. VALACICLOVIR [Concomitant]
  6. OXYCONTIN [Concomitant]

REACTIONS (3)
  - Plasma cell myeloma [Fatal]
  - Palmar-plantar erythrodysaesthesia syndrome [Unknown]
  - Palmar-plantar erythrodysaesthesia syndrome [Recovered/Resolved]
